FAERS Safety Report 6988365-8 (Version None)
Quarter: 2010Q3

REPORT INFORMATION
  Report Type: 
  Country: None (occurrence: None)
  Receive Date: 20100916
  Receipt Date: 20100906
  Transmission Date: 20110219
  Serious: Yes (Life-Threatening, Hospitalization, Other)
  Sender: FDA-Public Use
  Company Number: DE-ABBOTT-10P-062-0668375-00

PATIENT
  Age: 79 Year

DRUGS (7)
  1. KLACID FORTE [Suspect]
     Indication: PRODUCT USED FOR UNKNOWN INDICATION
     Dosage: FILM COATED,BID,CUMULATED DOSE7000MG
     Route: 048
     Dates: start: 20100414, end: 20100420
  2. DIOVAN [Concomitant]
     Indication: PRODUCT USED FOR UNKNOWN INDICATION
     Dosage: OPD,ORAL,CUMULATED 320MG
     Route: 048
     Dates: start: 20100413, end: 20100414
  3. CO DIOVAN 160/25 REP. 160/12.5MG TABLET [Concomitant]
     Indication: PRODUCT USED FOR UNKNOWN INDICATION
     Dosage: OPD, BREAK11-13 APR 2010
     Route: 048
     Dates: start: 20100316, end: 20100420
  4. XENETIX [Concomitant]
     Indication: ANGIOGRAM
     Dosage: ONCE 5265MG, OPD, CUMULATED:42120MG
     Route: 042
     Dates: start: 20100429, end: 20100429
  5. MEROPENEM [Concomitant]
     Indication: PRODUCT USED FOR UNKNOWN INDICATION
     Route: 042
     Dates: start: 20100420, end: 20100502
  6. MEROPENEM [Concomitant]
     Route: 042
     Dates: start: 20100502, end: 20100502
  7. ROCEPHIN [Concomitant]
     Indication: PRODUCT USED FOR UNKNOWN INDICATION
     Dosage: 2000MG ONCE DAILY,CUMULATED 16000MG
     Route: 042
     Dates: start: 20100413, end: 20100420

REACTIONS (4)
  - HYPERTENSION [None]
  - RENAL ARTERY STENOSIS [None]
  - RENAL FAILURE ACUTE [None]
  - VOMITING [None]
